FAERS Safety Report 4547304-X (Version None)
Quarter: 2005Q1

REPORT INFORMATION
  Report Type: 
  Country: None (occurrence: None)
  Receive Date: 20050105
  Receipt Date: 20041216
  Transmission Date: 20050727
  Serious: Yes (Death, Other)
  Sender: FDA-Public Use
  Company Number: USA040978999

PATIENT
  Age: 62 Year
  Sex: Female
  Weight: 96 kg

DRUGS (12)
  1. GEMZAR [Suspect]
     Indication: BREAST CANCER METASTATIC
     Dosage: 2000 MG
     Route: 042
     Dates: start: 20040420, end: 20040812
  2. PROTONIX [Concomitant]
  3. COMBIVENT [Concomitant]
  4. FLOVENT [Concomitant]
  5. SYNTHROID [Concomitant]
  6. LORAZEPAM [Concomitant]
  7. LASIX [Concomitant]
  8. POTASSIUM [Concomitant]
  9. (DOCUSATE SODIUM) [Concomitant]
     Indication: ABNORMAL FAECES
  10. TRAZODONE [Concomitant]
  11. METOCLOPRAMIDE [Concomitant]
  12. THEOPHYLLINE [Concomitant]

REACTIONS (27)
  - ACUTE MYOCARDIAL INFARCTION [None]
  - ANOREXIA [None]
  - BACK PAIN [None]
  - BLOOD ALBUMIN DECREASED [None]
  - BREAST NECROSIS [None]
  - COLITIS [None]
  - CORONARY ARTERY ATHEROSCLEROSIS [None]
  - CYTOMEGALOVIRUS INFECTION [None]
  - DRUG TOXICITY [None]
  - FAT NECROSIS [None]
  - HEPATIC FUNCTION ABNORMAL [None]
  - HEPATIC NECROSIS [None]
  - HEPATOTOXICITY [None]
  - LUNG ADENOCARCINOMA [None]
  - METASTASES TO LIVER [None]
  - NEUTROPHIL COUNT DECREASED [None]
  - OBSTRUCTION [None]
  - PANCREATIC DUCT OBSTRUCTION [None]
  - PANCREATITIS ACUTE [None]
  - PNEUMONIA [None]
  - PULMONARY ALVEOLAR HAEMORRHAGE [None]
  - RIGHT VENTRICULAR FAILURE [None]
  - SOMNOLENCE [None]
  - TACHYCARDIA [None]
  - TREMOR [None]
  - URINARY TRACT INFECTION [None]
  - WHITE BLOOD CELL COUNT DECREASED [None]
